FAERS Safety Report 9799114 (Version 3)
Quarter: 2015Q3

REPORT INFORMATION
  Report Type: Spontaneous
  Country: US (occurrence: US)
  Receive Date: 20140106
  Receipt Date: 20150806
  Transmission Date: 20151125
  Serious: No
  Sender: FDA-Public Use
  Company Number: US-GILEAD-2010-0032324

PATIENT
  Age: 74 Year
  Sex: Female
  Weight: 65.32 kg

DRUGS (23)
  1. MECLIZINE [Concomitant]
     Active Substance: MECLIZINE\MECLIZINE HYDROCHLORIDE
  2. NEXIUM [Concomitant]
     Active Substance: ESOMEPRAZOLE MAGNESIUM
  3. TRAMADOL. [Concomitant]
     Active Substance: TRAMADOL
  4. SYNTHROID [Concomitant]
     Active Substance: LEVOTHYROXINE SODIUM
  5. MULTIVITAMIN [Concomitant]
     Active Substance: VITAMINS
  6. NITROGLYCERIN. [Concomitant]
     Active Substance: NITROGLYCERIN
  7. QVAR [Concomitant]
     Active Substance: BECLOMETHASONE DIPROPIONATE
  8. ALIGN [Concomitant]
     Active Substance: BIFIDOBACTERIUM LONGUM SUBSP. INFANTIS
  9. PARACETAMOL/HYDROCODONE BITARTRATE [Concomitant]
  10. CYMBALTA [Concomitant]
     Active Substance: DULOXETINE HYDROCHLORIDE
  11. ZANTAC [Concomitant]
     Active Substance: RANITIDINE HYDROCHLORIDE
  12. LAMICTAL [Concomitant]
     Active Substance: LAMOTRIGINE
  13. PREDNISONE. [Concomitant]
     Active Substance: PREDNISONE
  14. GABAPENTIN. [Concomitant]
     Active Substance: GABAPENTIN
  15. LITHIUM. [Concomitant]
     Active Substance: LITHIUM
  16. COUMADIN [Concomitant]
     Active Substance: WARFARIN SODIUM
  17. RHINOCORT AQUA [Concomitant]
     Active Substance: BUDESONIDE
  18. CITALOPRAM [Concomitant]
     Active Substance: CITALOPRAM HYDROBROMIDE
  19. SYMAX SR [Concomitant]
     Active Substance: HYOSCYAMINE SULFATE
  20. LETAIRIS [Suspect]
     Active Substance: AMBRISENTAN
     Indication: PULMONARY ARTERIAL HYPERTENSION
     Route: 048
     Dates: start: 20100910, end: 20101001
  21. LASIX [Concomitant]
     Active Substance: FUROSEMIDE
  22. ASACOL [Concomitant]
     Active Substance: MESALAMINE
  23. VITAMIN D [Concomitant]
     Active Substance: CHOLECALCIFEROL

REACTIONS (1)
  - Diarrhoea [Recovered/Resolved]

NARRATIVE: CASE EVENT DATE: 20100910
